FAERS Safety Report 19064749 (Version 1)
Quarter: 2021Q1

REPORT INFORMATION
  Report Type: Spontaneous
  Country: US (occurrence: US)
  Receive Date: 20210327
  Receipt Date: 20210327
  Transmission Date: 20210420
  Serious: No
  Sender: FDA-Public Use
  Company Number: US-JNJFOC-20210334828

PATIENT
  Sex: Male

DRUGS (1)
  1. PEPCID COMPLETE [Suspect]
     Active Substance: CALCIUM CARBONATE\FAMOTIDINE\MAGNESIUM HYDROXIDE
     Indication: PRODUCT USED FOR UNKNOWN INDICATION
     Dosage: FREQUENCY UNKNOWN FOR 10 DAYS
     Route: 048
     Dates: start: 202103

REACTIONS (1)
  - Spontaneous penile erection [Not Recovered/Not Resolved]

NARRATIVE: CASE EVENT DATE: 202103
